FAERS Safety Report 5810984-2 (Version None)
Quarter: 2008Q3

REPORT INFORMATION
  Report Type: 
  Country: None (occurrence: None)
  Receive Date: 20080716
  Receipt Date: 20080709
  Transmission Date: 20090109
  Serious: Yes (Other)
  Sender: FDA-Public Use
  Company Number: JP-BAYER-200811536BYL

PATIENT
  Age: 50 Year
  Sex: Female

DRUGS (4)
  1. BETAFERON [Suspect]
     Indication: RELAPSING-REMITTING MULTIPLE SCLEROSIS
     Dosage: AS USED: 2 MIU
     Route: 058
     Dates: start: 20070501
  2. BETAFERON [Suspect]
     Dosage: AS USED: 4 MIU
     Route: 058
     Dates: start: 20070701
  3. BETAFERON [Suspect]
     Dosage: AS USED: 8 MIU
     Route: 058
     Dates: start: 20070801
  4. STEROID [Concomitant]
     Indication: RELAPSING-REMITTING MULTIPLE SCLEROSIS
     Route: 048

REACTIONS (2)
  - INJECTION SITE NECROSIS [None]
  - INJECTION SITE ULCER [None]
